FAERS Safety Report 11131290 (Version 1)
Quarter: 2015Q2

REPORT INFORMATION
  Report Type: Report from Study
  Country: US (occurrence: None)
  Receive Date: 20150520
  Receipt Date: 20150520
  Transmission Date: 20150821
  Serious: Yes (Other)
  Sender: FDA-Public Use
  Company Number: US-001909N

PATIENT
  Sex: Female

DRUGS (1)
  1. GATTEX [Suspect]
     Active Substance: TEDUGLUTIDE\WATER
     Indication: SHORT-BOWEL SYNDROME
     Dosage: DF
     Route: 058

REACTIONS (7)
  - Pain [None]
  - Abdominal distension [None]
  - Nausea [None]
  - Vomiting [None]
  - Abdominal pain [None]
  - Intestinal stenosis [None]
  - Diarrhoea [None]
